FAERS Safety Report 17925010 (Version 11)
Quarter: 2023Q1

REPORT INFORMATION
  Report Type: Report from Study
  Country: US (occurrence: US)
  Receive Date: 20200622
  Receipt Date: 20230112
  Transmission Date: 20230418
  Serious: Yes (Other)
  Sender: FDA-Public Use
  Company Number: US-SHIRE-US202020377

PATIENT
  Age: 12 Year
  Sex: Female
  Weight: 54 kg

DRUGS (16)
  1. HUMAN IMMUNOGLOBULIN G [Suspect]
     Active Substance: HUMAN IMMUNOGLOBULIN G
     Indication: Myasthenia gravis
     Dosage: 750 MILLIGRAM/KILOGRAM, Q4WEEKS
     Route: 042
     Dates: start: 20200526
  2. HUMAN IMMUNOGLOBULIN G [Suspect]
     Active Substance: HUMAN IMMUNOGLOBULIN G
     Dosage: 41 GRAM, Q4WEEKS
     Route: 042
     Dates: start: 20200526
  3. HUMAN IMMUNOGLOBULIN G [Suspect]
     Active Substance: HUMAN IMMUNOGLOBULIN G
     Dosage: 30 GRAM, Q4WEEKS
     Route: 042
     Dates: start: 20200526
  4. HUMAN IMMUNOGLOBULIN G [Suspect]
     Active Substance: HUMAN IMMUNOGLOBULIN G
     Dosage: 750 MILLIGRAM/KILOGRAM, Q4WEEKS
     Route: 042
     Dates: start: 20200527
  5. HUMAN IMMUNOGLOBULIN G [Suspect]
     Active Substance: HUMAN IMMUNOGLOBULIN G
     Dosage: 30 GRAM, Q4WEEKS
     Route: 042
     Dates: start: 20200527
  6. COVID-19 VACCINE NOS [Suspect]
     Active Substance: COVID-19 VACCINE NOS
     Indication: COVID-19 immunisation
     Dosage: UNK
     Route: 065
  7. ACETAMINOPHEN [Concomitant]
     Active Substance: ACETAMINOPHEN
     Indication: Product used for unknown indication
     Dosage: UNK
  8. DIPHENHYDRAMINE [Concomitant]
     Active Substance: DIPHENHYDRAMINE
     Indication: Product used for unknown indication
  9. EPINEPHRINE [Concomitant]
     Active Substance: EPINEPHRINE
     Indication: Product used for unknown indication
     Dosage: UNK
  10. SODIUM CHLORIDE [Concomitant]
     Active Substance: SODIUM CHLORIDE
     Indication: Product used for unknown indication
  11. SODIUM CHLORIDE [Concomitant]
     Active Substance: SODIUM CHLORIDE
     Indication: Product used for unknown indication
  12. LIDOCAINE [Concomitant]
     Active Substance: LIDOCAINE
     Indication: Product used for unknown indication
     Dosage: UNK
  13. SODIUM CHLORIDE [Concomitant]
     Active Substance: SODIUM CHLORIDE
     Indication: Product used for unknown indication
     Dosage: UNK
  14. ZOFRAN [Concomitant]
     Active Substance: ONDANSETRON HYDROCHLORIDE
     Indication: Product used for unknown indication
     Dosage: UNK
  15. MESTINON [Concomitant]
     Active Substance: PYRIDOSTIGMINE BROMIDE
     Indication: Product used for unknown indication
     Dosage: UNK
  16. MELATONIN [Concomitant]
     Active Substance: MELATONIN

REACTIONS (22)
  - Thymus disorder [Unknown]
  - Diplopia [Unknown]
  - Dyspnoea exertional [Unknown]
  - Blepharospasm [Unknown]
  - Vocal cord dysfunction [Unknown]
  - Bone disorder [Unknown]
  - Bone contusion [Unknown]
  - Condition aggravated [Unknown]
  - Chest discomfort [Unknown]
  - Feeling abnormal [Unknown]
  - Muscular weakness [Unknown]
  - Headache [Recovered/Resolved]
  - Chest pain [Unknown]
  - Palpitations [Unknown]
  - Nausea [Unknown]
  - Vomiting [Unknown]
  - Musculoskeletal chest pain [Unknown]
  - Back pain [Unknown]
  - Pain [Unknown]
  - Eyelid ptosis [Unknown]
  - Incorrect drug administration rate [Unknown]
  - Product use in unapproved indication [Unknown]

NARRATIVE: CASE EVENT DATE: 20200618
